FAERS Safety Report 21505111 (Version 1)
Quarter: 2022Q4

REPORT INFORMATION
  Report Type: Spontaneous
  Country: US (occurrence: None)
  Receive Date: 20221025
  Receipt Date: 20221025
  Transmission Date: 20230113
  Serious: No
  Sender: FDA-Public Use
  Company Number: None

PATIENT
  Age: 58 Year
  Sex: Male

DRUGS (2)
  1. TADALAFIL [Suspect]
     Active Substance: TADALAFIL
     Indication: Pulmonary arterial hypertension
     Dosage: 40MG DAILY PO?
     Route: 048
     Dates: start: 20151001
  2. TYVASO [Suspect]
     Active Substance: TREPROSTINIL

REACTIONS (1)
  - Vision blurred [None]

NARRATIVE: CASE EVENT DATE: 20221024
